FAERS Safety Report 15942218 (Version 1)
Quarter: 2019Q1

REPORT INFORMATION
  Report Type: Other
  Country: US (occurrence: US)
  Receive Date: 20190210
  Receipt Date: 20190210
  Transmission Date: 20190417
  Serious: No
  Sender: FDA-Public Use
  Company Number: US-ALEXION PHARMACEUTICALS INC.-A201901767

PATIENT
  Age: 23 Year
  Sex: Male
  Weight: 138 kg

DRUGS (2)
  1. STRENSIQ [Suspect]
     Active Substance: ASFOTASE ALFA
     Indication: HYPOPHOSPHATASIA
     Dosage: 276 MG, TIW
     Route: 058
     Dates: start: 20190202
  2. STRENSIQ [Suspect]
     Active Substance: ASFOTASE ALFA
     Dosage: 276 MG, TIW
     Route: 058
     Dates: start: 20190202

REACTIONS (1)
  - Syncope [Recovered/Resolved]

NARRATIVE: CASE EVENT DATE: 20190202
